FAERS Safety Report 16157480 (Version 1)
Quarter: 2019Q2

REPORT INFORMATION
  Report Type: Spontaneous
  Country: US (occurrence: US)
  Receive Date: 20190403
  Receipt Date: 20190403
  Transmission Date: 20190711
  Serious: Yes (Hospitalization)
  Sender: FDA-Public Use
  Company Number: None

PATIENT
  Age: 50 Year
  Sex: Female

DRUGS (16)
  1. PROAIR HFA [Concomitant]
     Active Substance: ALBUTEROL SULFATE
  2. EFFEXOR [Concomitant]
     Active Substance: VENLAFAXINE HYDROCHLORIDE
  3. EXJADE [Suspect]
     Active Substance: DEFERASIROX
     Indication: IRON OVERLOAD
     Route: 048
     Dates: start: 20190214
  4. TRIAMCINOLONE ACETONIDE. [Concomitant]
     Active Substance: TRIAMCINOLONE ACETONIDE
  5. FASLODEX [Concomitant]
     Active Substance: FULVESTRANT
  6. CALCIUM [Concomitant]
     Active Substance: CALCIUM
  7. XGEVA [Concomitant]
     Active Substance: DENOSUMAB
  8. VITAMIN B12 [Concomitant]
     Active Substance: CYANOCOBALAMIN
  9. DIAZEPAM. [Concomitant]
     Active Substance: DIAZEPAM
  10. TRAMADOL. [Concomitant]
     Active Substance: TRAMADOL
  11. SOMA [Concomitant]
     Active Substance: CARISOPRODOL
  12. HYDROCODONE BITARTRATE AND ACETAMINOPHEN [Concomitant]
     Active Substance: ACETAMINOPHEN\HYDROCODONE BITARTRATE
  13. HYDROXYZINE [Concomitant]
     Active Substance: HYDROXYZINE HYDROCHLORIDE
  14. MAGNESIUM [Concomitant]
     Active Substance: MAGNESIUM
  15. IBUPROFEN. [Concomitant]
     Active Substance: IBUPROFEN
  16. FENTANYL. [Concomitant]
     Active Substance: FENTANYL

REACTIONS (2)
  - Fall [None]
  - Loss of consciousness [None]

NARRATIVE: CASE EVENT DATE: 20190401
